FAERS Safety Report 8521878-6 (Version None)
Quarter: 2012Q3

REPORT INFORMATION
  Report Type: 
  Country: None (occurrence: None)
  Receive Date: 20120719
  Receipt Date: 20120521
  Transmission Date: 20120928
  Serious: No
  Sender: FDA-Public Use
  Company Number: US-BRISTOL-MYERS SQUIBB COMPANY-16606618

PATIENT
  Age: 68 Year
  Sex: Female
  Weight: 47 kg

DRUGS (5)
  1. PERCOCET [Concomitant]
  2. MORPHINE SULFATE [Concomitant]
  3. DECADRON [Concomitant]
  4. YERVOY [Suspect]
     Dates: start: 20120511
  5. NORVASC [Concomitant]

REACTIONS (2)
  - RASH [None]
  - PRURITUS [None]
